FAERS Safety Report 4731544-0 (Version None)
Quarter: 2005Q3

REPORT INFORMATION
  Report Type: 
  Country: None (occurrence: None)
  Receive Date: 20050719
  Receipt Date: 20040615
  Transmission Date: 20060218
  Serious: Yes (Hospitalization)
  Sender: FDA-Public Use
  Company Number: 199958

PATIENT
  Age: 61 Year
  Sex: Female
  Weight: 63.5036 kg

DRUGS (5)
  1. AVONEX [Suspect]
     Indication: MULTIPLE SCLEROSIS
     Dosage: 30 UG; QW; IM
     Route: 030
     Dates: start: 20030601
  2. ASPIRIN [Concomitant]
  3. MAXZIDE [Concomitant]
  4. ACTONEL [Concomitant]
  5. FOLIC ACID [Concomitant]

REACTIONS (3)
  - DEPRESSION [None]
  - HYPOAESTHESIA [None]
  - STRESS [None]
